FAERS Safety Report 8100417-8 (Version None)
Quarter: 2012Q1

REPORT INFORMATION
  Report Type: 
  Country: None (occurrence: None)
  Receive Date: 20120129
  Receipt Date: 20111229
  Transmission Date: 20120608
  Serious: No
  Sender: FDA-Public Use
  Company Number: US-ABBOTT-11P-163-0866452-00

PATIENT
  Sex: Female
  Weight: 55.842 kg

DRUGS (3)
  1. MULTI-VITAMIN [Concomitant]
     Indication: PRODUCT USED FOR UNKNOWN INDICATION
  2. HUMIRA [Suspect]
     Indication: CROHN'S DISEASE
     Dates: start: 20110729
  3. LIBRAX [Concomitant]
     Indication: MUSCLE SPASMS
     Dates: start: 20110501

REACTIONS (4)
  - OROPHARYNGEAL PAIN [None]
  - HEADACHE [None]
  - COUGH [None]
  - ALOPECIA [None]
